FAERS Safety Report 5688879-7 (Version None)
Quarter: 2008Q1

REPORT INFORMATION
  Report Type: 
  Country: None (occurrence: None)
  Receive Date: 20080331
  Receipt Date: 20080320
  Transmission Date: 20080703
  Serious: Yes (Other)
  Sender: FDA-Public Use
  Company Number: HQWYE446402APR03

PATIENT
  Sex: Female

DRUGS (2)
  1. PREMPRO [Suspect]
     Dosage: 1 TABLET DAILY; UNSPECIFIED
     Route: 048
  2. PREMARIN [Suspect]

REACTIONS (1)
  - BREAST CANCER METASTATIC [None]
